FAERS Safety Report 7906296-3 (Version None)
Quarter: 2011Q4

REPORT INFORMATION
  Report Type: 
  Country: None (occurrence: None)
  Receive Date: 20111109
  Receipt Date: 20111109
  Transmission Date: 20120403
  Serious: Yes (Life-Threatening)
  Sender: FDA-Public Use
  Company Number: None

PATIENT
  Age: 64 Year
  Sex: Female
  Weight: 80.2867 kg

DRUGS (2)
  1. SAVELLA [Suspect]
     Indication: DEPRESSION
     Dosage: 50 MG 2 X DAILY
  2. SAVELLA [Suspect]
     Indication: PAIN
     Dosage: 50 MG 2 X DAILY

REACTIONS (1)
  - SUICIDAL IDEATION [None]
